FAERS Safety Report 5251732-7 (Version None)
Quarter: 2007Q1

REPORT INFORMATION
  Report Type: 
  Country: None (occurrence: None)
  Receive Date: 20070228
  Receipt Date: 20061103
  Transmission Date: 20070707
  Serious: No
  Sender: FDA-Public Use
  Company Number: US-GLAXOSMITHKLINE-A0624379A

PATIENT
  Age: 38 Year
  Sex: Male

DRUGS (7)
  1. LAMICTAL [Suspect]
     Indication: BIPOLAR DISORDER
     Dosage: 25MG AT NIGHT
     Route: 048
     Dates: start: 20061015
  2. BENADRYL [Concomitant]
  3. CLARITIN [Concomitant]
  4. SEROQUEL [Concomitant]
  5. ALBUTEROL [Concomitant]
  6. RESTORIL [Concomitant]
  7. TOPICAL ERYTHROMYCIN [Concomitant]

REACTIONS (3)
  - GROIN INFECTION [None]
  - LOCAL SWELLING [None]
  - RASH [None]
